FAERS Safety Report 10388891 (Version 1)
Quarter: 2014Q1

REPORT INFORMATION
  Report Type: Spontaneous
  Country: US (occurrence: None)
  Receive Date: 20140306
  Receipt Date: 20140306
  Transmission Date: 20141002
  Serious: Yes (Hospitalization)
  Sender: FDA-Public Use
  Company Number: 163-21880-13070373

PATIENT
  Age: 83 Year
  Sex: Male

DRUGS (7)
  1. REVLIMID (LENALIDOMIDE) (15 MILLIGRAM, CAPSULES) [Suspect]
     Indication: PLASMA CELL MYELOMA
     Dosage: 15 MG, 21 IN 28 D, PO
     Route: 048
     Dates: start: 201302, end: 201306
  2. CARDIZEM (DILTIAZEM HYDROCHLORIDE) [Concomitant]
  3. SIMVASTATIN [Concomitant]
  4. RAMIPRIL [Concomitant]
  5. METOPROLOL [Concomitant]
  6. MULTIVITAMIN [Concomitant]
  7. VELCADE (BORTEZOMIB) [Concomitant]

REACTIONS (1)
  - Deep vein thrombosis [None]
